FAERS Safety Report 12071363 (Version 1)
Quarter: 2016Q1

REPORT INFORMATION
  Report Type: Report from Study
  Country: US (occurrence: US)
  Receive Date: 20160211
  Receipt Date: 20160211
  Transmission Date: 20160526
  Serious: No
  Sender: FDA-Public Use
  Company Number: US-AMGEN-USASL2016013806

PATIENT
  Age: 52 Year
  Sex: Female

DRUGS (1)
  1. ENBREL [Suspect]
     Active Substance: ETANERCEPT
     Indication: ANKYLOSING SPONDYLITIS
     Dosage: 50 MG, QWK
     Route: 065
     Dates: start: 20150617

REACTIONS (6)
  - Induration [Unknown]
  - Visual acuity reduced [Unknown]
  - Birth mark [Unknown]
  - Rash macular [Unknown]
  - Skin papilloma [Unknown]
  - Dermatitis acneiform [Unknown]
